FAERS Safety Report 20436136 (Version 1)
Quarter: 2022Q1

REPORT INFORMATION
  Report Type: Spontaneous
  Country: US (occurrence: US)
  Receive Date: 20220207
  Receipt Date: 20220207
  Transmission Date: 20220423
  Serious: Yes (Other)
  Sender: FDA-Public Use
  Company Number: US-AMGEN-USASP2022015758

PATIENT
  Age: 67 Year
  Sex: Female

DRUGS (3)
  1. RITUXIMAB [Suspect]
     Active Substance: RITUXIMAB
     Indication: Post transplant lymphoproliferative disorder
     Dosage: UNK UNK, QWK
     Route: 065
  2. RITUXIMAB [Suspect]
     Active Substance: RITUXIMAB
     Indication: Off label use
  3. CYCLOPHOSPHAMIDE\DOXORUBICIN\PREDNISOLONE\VINCRISTINE [Suspect]
     Active Substance: CYCLOPHOSPHAMIDE\DOXORUBICIN\PREDNISOLONE\VINCRISTINE
     Indication: Post transplant lymphoproliferative disorder
     Route: 065

REACTIONS (2)
  - Post transplant lymphoproliferative disorder [Recovered/Resolved]
  - Off label use [Unknown]
